FAERS Safety Report 14313558 (Version 1)
Quarter: 2017Q4

REPORT INFORMATION
  Report Type: Report from Study
  Country: ES (occurrence: ES)
  Receive Date: 20171221
  Receipt Date: 20171221
  Transmission Date: 20180321
  Serious: Yes (Other)
  Sender: FDA-Public Use
  Company Number: ES-PFIZER INC-2017543751

PATIENT
  Age: 13 Year
  Sex: Male

DRUGS (10)
  1. SUCRALFAT [Concomitant]
     Active Substance: SUCRALFATE
     Indication: PROPHYLAXIS
     Dosage: 1 G, 1X/DAY
     Route: 048
     Dates: start: 20170518, end: 20170524
  2. ACETILCISTEINA [Concomitant]
     Active Substance: ACETYLCYSTEINE
     Indication: PROPHYLAXIS
     Dosage: 13.4 G, 1X/DAY
     Route: 042
     Dates: start: 20170519, end: 20170521
  3. PIPERACILLIN/TAZOBACTAM [Suspect]
     Active Substance: PIPERACILLIN SODIUM\TAZOBACTAM SODIUM
     Indication: PROPHYLAXIS
     Dosage: 16 G, 1X/DAY
     Route: 042
     Dates: start: 20170504, end: 20170529
  4. ACICLOVIR /00587302/ [Concomitant]
     Indication: PROPHYLAXIS
     Dosage: 2400 MG, 1X/DAY
     Route: 048
     Dates: start: 20170504, end: 20170518
  5. OMEPRAZOL [Concomitant]
     Active Substance: OMEPRAZOLE
     Indication: PROPHYLAXIS
     Dosage: 20 MG, UNK
     Route: 048
     Dates: start: 20170509, end: 20170524
  6. SEPTRIN [Concomitant]
     Active Substance: SULFAMETHOXAZOLE\TRIMETHOPRIM
     Indication: PROPHYLAXIS
     Dosage: 1 DF, 1X/DAY
     Route: 048
     Dates: start: 20170504
  7. VINCRISTINE SULFATE. [Suspect]
     Active Substance: VINCRISTINE SULFATE
     Indication: ACUTE LYMPHOCYTIC LEUKAEMIA
     Dosage: 6 MG, UNK
     Route: 042
     Dates: start: 20170509, end: 20170523
  8. ERWINA ASPARAGINAS [Suspect]
     Active Substance: ASPARAGINASE ERWINIA CHRYSANTHEMI
     Indication: ACUTE LYMPHOCYTIC LEUKAEMIA
     Dosage: 80 IU/KG, UNK
     Route: 030
     Dates: start: 20170527, end: 20170531
  9. CITARABINA [Suspect]
     Active Substance: CYTARABINE
     Indication: ACUTE LYMPHOCYTIC LEUKAEMIA
     Dosage: 6150 MG, 1X/DAY
     Route: 042
     Dates: start: 20170523, end: 20170524
  10. ONDANSETRON HYDROCHLORIDE. [Concomitant]
     Active Substance: ONDANSETRON HYDROCHLORIDE
     Indication: PROPHYLAXIS
     Dosage: 24 MG, 1X/DAY
     Route: 042
     Dates: start: 20170509, end: 20170524

REACTIONS (3)
  - Pseudomonal bacteraemia [Recovered/Resolved]
  - Agranulocytosis [Recovered/Resolved]
  - Klebsiella bacteraemia [Recovered/Resolved]

NARRATIVE: CASE EVENT DATE: 20170530
